FAERS Safety Report 6699266-7 (Version None)
Quarter: 2010Q2

REPORT INFORMATION
  Report Type: 
  Country: None (occurrence: None)
  Receive Date: 20100427
  Receipt Date: 20100415
  Transmission Date: 20101027
  Serious: Yes (Hospitalization)
  Sender: FDA-Public Use
  Company Number: FR-ELI_LILLY_AND_COMPANY-FR201003001194

PATIENT
  Sex: Male

DRUGS (7)
  1. ALIMTA [Suspect]
     Indication: LUNG ADENOCARCINOMA
     Dosage: UNK, UNKNOWN
     Route: 042
     Dates: start: 20080819, end: 20090316
  2. ALIMTA [Suspect]
     Dosage: 1000 MG, UNKNOWN
     Route: 042
     Dates: start: 20100211, end: 20100211
  3. CARBOPLATIN [Concomitant]
     Indication: LUNG ADENOCARCINOMA
     Dosage: 630 MG, UNKNOWN
     Route: 042
     Dates: start: 20100211, end: 20100211
  4. KYTRIL [Concomitant]
     Dosage: UNK, UNKNOWN
     Route: 042
     Dates: start: 20100211, end: 20100211
  5. MOPRAL [Concomitant]
     Dosage: UNK, UNKNOWN
     Route: 042
     Dates: start: 20100211, end: 20100211
  6. SOLU-MEDROL [Concomitant]
     Dosage: UNK, UNKNOWN
     Route: 042
     Dates: start: 20100211, end: 20100211
  7. SOLUPRED [Concomitant]
     Indication: PROPHYLAXIS
     Dosage: 60 MG, DAILY (1/D)
     Route: 048
     Dates: start: 20100210, end: 20100212

REACTIONS (1)
  - PURPURA [None]
